FAERS Safety Report 13954959 (Version 1)
Quarter: 2017Q3

REPORT INFORMATION
  Report Type: Spontaneous
  Country: US (occurrence: US)
  Receive Date: 20170911
  Receipt Date: 20170911
  Transmission Date: 20171128
  Serious: No
  Sender: FDA-Public Use
  Company Number: None

PATIENT
  Age: 21 Year
  Sex: Female
  Weight: 56.25 kg

DRUGS (1)
  1. EUCRISA [Suspect]
     Active Substance: CRISABOROLE
     Indication: DERMATITIS ATOPIC
     Dosage: ?          QUANTITY:1 60 G TUBE; TWICE A DAY  TOPICAL?
     Route: 061
     Dates: start: 20170905, end: 20170910

REACTIONS (1)
  - Application site pain [None]

NARRATIVE: CASE EVENT DATE: 20170905
